FAERS Safety Report 12740236 (Version 1)
Quarter: 2016Q3

REPORT INFORMATION
  Report Type: Spontaneous
  Country: US (occurrence: US)
  Receive Date: 20160913
  Receipt Date: 20160913
  Transmission Date: 20161109
  Serious: No
  Sender: FDA-Public Use
  Company Number: US-EMERGENT BIOSOLUTIONS-16BA00119SP

PATIENT
  Sex: Male
  Weight: 71.8 kg

DRUGS (6)
  1. BAT [Suspect]
     Active Substance: EQUINE BOTULINUM NEUROTOXIN A/B/C/D/E/F/G IMMUNE FAB2
     Indication: BOTULISM
     Dosage: 18 ML, SINGLE
     Dates: start: 20160731, end: 20160801
  2. FENTANYL CITRATE. [Concomitant]
     Active Substance: FENTANYL CITRATE
     Dosage: 200 ?G, UNK
     Dates: start: 201608
  3. ROBAXIN [Concomitant]
     Active Substance: METHOCARBAMOL
     Dosage: UNK
     Dates: start: 201608
  4. IVIGLOB EX [Concomitant]
     Active Substance: HUMAN IMMUNOGLOBULIN G
     Indication: GUILLAIN-BARRE SYNDROME
     Dosage: UNK
     Dates: start: 201608, end: 201608
  5. MORPHINE [Concomitant]
     Active Substance: MORPHINE
     Indication: PREMEDICATION
     Dosage: 2 MG, SINGLE
     Route: 042
     Dates: start: 20160731, end: 20160731
  6. BLOOD PLASMA ACTIVE PRINCIPLES [Concomitant]
     Indication: GUILLAIN-BARRE SYNDROME
     Dosage: UNK
     Dates: start: 20160811, end: 20160826

REACTIONS (1)
  - Pneumonia [Unknown]
